FAERS Safety Report 9366987 (Version 2)
Quarter: 2013Q3

REPORT INFORMATION
  Report Type: Spontaneous
  Country: DE (occurrence: DE)
  Receive Date: 20130625
  Receipt Date: 20130702
  Transmission Date: 20140515
  Serious: Yes (Death)
  Sender: FDA-Public Use
  Company Number: DE-GILEAD-2013-0077754

PATIENT
  Age: 98 Year
  Sex: Male

DRUGS (3)
  1. AMBRISENTAN [Suspect]
     Indication: PRODUCT USED FOR UNKNOWN INDICATION
     Dosage: UNK
     Route: 048
  2. REVATIO [Suspect]
     Route: 065
  3. REVATIO [Suspect]
     Dosage: 60MG PER DAY
     Route: 065
     Dates: start: 200612

REACTIONS (1)
  - Infection [Fatal]
